FAERS Safety Report 7334737-1 (Version None)
Quarter: 2011Q1

REPORT INFORMATION
  Report Type: 
  Country: None (occurrence: None)
  Receive Date: 20110307
  Receipt Date: 20110228
  Transmission Date: 20110831
  Serious: Yes (Death, Other)
  Sender: FDA-Public Use
  Company Number: PHHY2011BR17359

PATIENT
  Sex: Female

DRUGS (4)
  1. APRESOLINE [Suspect]
  2. ATENOLOL [Concomitant]
  3. PROPRANOLOL [Concomitant]
  4. DIOVAN [Suspect]
     Indication: BLOOD PRESSURE
     Dosage: 160 MG, QD

REACTIONS (3)
  - HAEMORRHAGE [None]
  - DEATH [None]
  - CYST [None]
